FAERS Safety Report 5851504-6 (Version None)
Quarter: 2008Q3

REPORT INFORMATION
  Report Type: 
  Country: None (occurrence: None)
  Receive Date: 20080820
  Receipt Date: 20080815
  Transmission Date: 20090109
  Serious: Yes (Hospitalization)
  Sender: FDA-Public Use
  Company Number: GB-EISAI MEDICAL RESEARCH-A044-002-005675

PATIENT
  Age: 76 Year
  Sex: Female

DRUGS (7)
  1. ARICEPT [Interacting]
     Indication: DEMENTIA ALZHEIMER'S TYPE
     Route: 048
     Dates: end: 20050101
  2. INDERAL [Interacting]
     Indication: ESSENTIAL TREMOR
     Route: 048
     Dates: end: 20050101
  3. INDERAL [Interacting]
     Indication: ANXIETY
  4. ESCITALOPRAM OXALATE [Interacting]
     Indication: DEPRESSION
     Route: 048
     Dates: start: 20050609, end: 20050615
  5. OMEPRAZOLE [Suspect]
     Indication: DRUG USE FOR UNKNOWN INDICATION
     Route: 048
  6. PROCHLORPERAZINE [Concomitant]
     Route: 048
  7. FERROUS SULFATE TAB [Concomitant]
     Route: 048

REACTIONS (5)
  - BRADYCARDIA [None]
  - DRUG INTERACTION [None]
  - ELECTROCARDIOGRAM QT PROLONGED [None]
  - SYNCOPE [None]
  - TORSADE DE POINTES [None]
